FAERS Safety Report 6541244-2 (Version None)
Quarter: 2010Q1

REPORT INFORMATION
  Report Type: 
  Country: None (occurrence: None)
  Receive Date: 20100118
  Receipt Date: 20100106
  Transmission Date: 20100710
  Serious: Yes (Hospitalization)
  Sender: FDA-Public Use
  Company Number: KR-ELI_LILLY_AND_COMPANY-KR200910004099

PATIENT
  Age: 53 Year
  Sex: Female
  Weight: 71 kg

DRUGS (8)
  1. BYETTA [Suspect]
     Indication: TYPE 2 DIABETES MELLITUS
     Dosage: 5 UG, 2/D
     Route: 058
     Dates: start: 20090801, end: 20090831
  2. BYETTA [Suspect]
     Dosage: 10 UG, 2/D
     Route: 058
     Dates: start: 20090901
  3. LEVEMIR [Concomitant]
     Indication: DIABETES MELLITUS
     Dosage: 48 U, EACH MORNING
     Route: 065
     Dates: end: 20091015
  4. LEVEMIR [Concomitant]
     Dosage: 20 U, EACH MORNING
     Route: 065
     Dates: start: 20091016
  5. LEVEMIR [Concomitant]
     Dosage: 12 U, DAILY (1/D)
     Route: 065
  6. ANTIHYPERTENSIVES [Concomitant]
     Indication: HYPERTENSION
     Dosage: UNK, UNKNOWN
     Route: 065
  7. METFORMIN [Concomitant]
     Indication: DIABETES MELLITUS
     Dosage: UNK, UNKNOWN
     Route: 065
  8. SULFONAMIDES, UREA DERIVATIVES [Concomitant]
     Indication: DIABETES MELLITUS
     Dosage: UNK, UNKNOWN
     Route: 065

REACTIONS (9)
  - ASTHENIA [None]
  - BLOOD GLUCOSE INCREASED [None]
  - COLD SWEAT [None]
  - DIZZINESS [None]
  - DYSPEPSIA [None]
  - GASTROINTESTINAL DISORDER [None]
  - NAUSEA [None]
  - OFF LABEL USE [None]
  - VOMITING [None]
